FAERS Safety Report 6015859-4 (Version None)
Quarter: 2008Q4

REPORT INFORMATION
  Report Type: 
  Country: None (occurrence: None)
  Receive Date: 20081222
  Receipt Date: 20081219
  Transmission Date: 20090506
  Serious: Yes (Hospitalization)
  Sender: FDA-Public Use
  Company Number: A0761172A

PATIENT
  Age: 51 Year
  Sex: Male
  Weight: 118.2 kg

DRUGS (9)
  1. AVANDIA [Suspect]
     Dosage: 8MG PER DAY
     Route: 048
     Dates: start: 20000705, end: 20041201
  2. GLYBURIDE [Concomitant]
  3. ATENOLOL [Concomitant]
  4. PLAVIX [Concomitant]
  5. LISINOPRIL [Concomitant]
  6. IBUPROFEN [Concomitant]
  7. PRINIVIL [Concomitant]
  8. MONOPRIL [Concomitant]
  9. FOSINOPRIL SODIUM [Concomitant]

REACTIONS (2)
  - CORONARY ARTERY DISEASE [None]
  - MYOCARDIAL INFARCTION [None]
